FAERS Safety Report 16631718 (Version 3)
Quarter: 2019Q3

REPORT INFORMATION
  Report Type: Spontaneous
  Country: US (occurrence: US)
  Receive Date: 20190725
  Receipt Date: 20190828
  Transmission Date: 20191004
  Serious: No
  Sender: FDA-Public Use
  Company Number: US-JNJFOC-20190732979

PATIENT
  Sex: Female
  Weight: 90.8 kg

DRUGS (15)
  1. DOVONEX [Concomitant]
     Active Substance: CALCIPOTRIENE
  2. STELARA [Suspect]
     Active Substance: USTEKINUMAB
     Route: 058
  3. TOPAMAX [Concomitant]
     Active Substance: TOPIRAMATE
  4. NEURONTIN [Concomitant]
     Active Substance: GABAPENTIN
  5. DESONIDE. [Concomitant]
     Active Substance: DESONIDE
  6. PROPRANOLOL [Concomitant]
     Active Substance: PROPRANOLOL HYDROCHLORIDE
  7. TRIAMCINOLONE [Concomitant]
     Active Substance: TRIAMCINOLONE
  8. OXYCODONE [Concomitant]
     Active Substance: OXYCODONE
  9. IMITREX [Concomitant]
     Active Substance: SUMATRIPTAN SUCCINATE
  10. TEMOVATE [Concomitant]
     Active Substance: CLOBETASOL PROPIONATE
  11. OMEPRAZOLE. [Concomitant]
     Active Substance: OMEPRAZOLE
  12. LIDOCAINE. [Concomitant]
     Active Substance: LIDOCAINE
  13. VITAMIN B12 [Concomitant]
     Active Substance: CYANOCOBALAMIN
  14. STELARA [Suspect]
     Active Substance: USTEKINUMAB
     Indication: PSORIASIS
     Route: 058
  15. ZOFRAN [Concomitant]
     Active Substance: ONDANSETRON HYDROCHLORIDE

REACTIONS (2)
  - Therapeutic product effect decreased [Unknown]
  - Psoriasis [Not Recovered/Not Resolved]
